FAERS Safety Report 25484934 (Version 3)
Quarter: 2025Q3

REPORT INFORMATION
  Report Type: Report from Study
  Country: US (occurrence: US)
  Receive Date: 20250626
  Receipt Date: 20250710
  Transmission Date: 20251021
  Serious: Yes (Hospitalization, Other)
  Sender: TAKEDA
  Company Number: US-TAKEDA-2025TUS056719

PATIENT
  Sex: Male
  Weight: 78.471 kg

DRUGS (3)
  1. FRUQUINTINIB [Suspect]
     Active Substance: FRUQUINTINIB
     Indication: Colon cancer
  2. ETODOLAC [Suspect]
     Active Substance: ETODOLAC
     Indication: Product used for unknown indication
  3. AVASTIN [Concomitant]
     Active Substance: BEVACIZUMAB

REACTIONS (11)
  - Pyrexia [Unknown]
  - Neutropenia [Unknown]
  - Joint stiffness [Unknown]
  - Erythema [Unknown]
  - Quality of life decreased [Unknown]
  - Pain [Not Recovered/Not Resolved]
  - Dysstasia [Unknown]
  - Abdominal pain upper [Unknown]
  - Gait inability [Unknown]
  - Dysphonia [Unknown]
  - Blood pressure increased [Unknown]
